FAERS Safety Report 4389185-3 (Version None)
Quarter: 2004Q2

REPORT INFORMATION
  Report Type: 
  Country: None (occurrence: None)
  Receive Date: 20040628
  Receipt Date: 20040621
  Transmission Date: 20050107
  Serious: No
  Sender: FDA-Public Use
  Company Number: EM2004-0313

PATIENT
  Sex: 0

DRUGS (7)
  1. PROLEUKIN; CHIRON CORPORATION (ADLESLEUKIN) INJECTION [Suspect]
     Indication: RENAL CELL CARCINOMA STAGE UNSPECIFIED
     Dosage: 60 MU, NO INFO.
     Dates: start: 20020909, end: 20020916
  2. INTERFERON ALFA(INTERFERON ALFA) [Suspect]
     Indication: RENAL CELL CARCINOMA STAGE UNSPECIFIED
     Dosage: 12 MU,
     Dates: start: 20020909, end: 20020916
  3. PARACETAMOL (PARACETAMOL) [Concomitant]
  4. INDOMETHACIN [Concomitant]
  5. OXYCODONE SR (OXYCODONE) [Concomitant]
  6. SENNA (SENNA) [Concomitant]
  7. SULFASALAZINE [Concomitant]

REACTIONS (1)
  - ANGIONEUROTIC OEDEMA [None]
